FAERS Safety Report 5707332-5 (Version None)
Quarter: 2008Q2

REPORT INFORMATION
  Report Type: 
  Country: None (occurrence: None)
  Receive Date: 20080416
  Receipt Date: 20080404
  Transmission Date: 20081010
  Serious: Yes (Death, Other)
  Sender: FDA-Public Use
  Company Number: CH-ROCHE-557187

PATIENT
  Age: 16 Year
  Sex: Male
  Weight: 80 kg

DRUGS (2)
  1. ROACCUTAN [Suspect]
     Indication: DRUG USE FOR UNKNOWN INDICATION
     Route: 048
     Dates: start: 20040301, end: 20050101
  2. ROACCUTAN GEL [Interacting]
     Indication: DRUG USE FOR UNKNOWN INDICATION
     Dosage: TAKEN AS NECESSARY
     Route: 061
     Dates: start: 20040301, end: 20050101

REACTIONS (8)
  - ANAL HAEMORRHAGE [None]
  - ARTHRALGIA [None]
  - COMPLETED SUICIDE [None]
  - DEPRESSION [None]
  - DRUG INTERACTION [None]
  - DRY SKIN [None]
  - PHOTOSENSITIVITY REACTION [None]
  - URETHRAL DISORDER [None]
